FAERS Safety Report 9989079 (Version 1)
Quarter: 2014Q1

REPORT INFORMATION
  Report Type: Report from Study
  Country: PR (occurrence: PR)
  Receive Date: 20140310
  Receipt Date: 20140310
  Transmission Date: 20141002
  Serious: No
  Sender: FDA-Public Use
  Company Number: PR-ABBVIE-13P-131-1135997-00

PATIENT
  Age: 28 Year
  Sex: Female
  Weight: 58.11 kg

DRUGS (1)
  1. HUMIRA [Suspect]
     Indication: CROHN^S DISEASE
     Route: 050
     Dates: start: 20130801

REACTIONS (2)
  - Drug administration error [Recovered/Resolved]
  - Injection site pain [Recovered/Resolved]
